FAERS Safety Report 7823373-6 (Version None)
Quarter: 2011Q4

REPORT INFORMATION
  Report Type: 
  Country: None (occurrence: None)
  Receive Date: 20111019
  Receipt Date: 20111012
  Transmission Date: 20120403
  Serious: Yes (Hospitalization, Other)
  Sender: FDA-Public Use
  Company Number: US-UCBSA-003036

PATIENT
  Sex: Male
  Weight: 3.49 kg

DRUGS (2)
  1. KEPPRA [Suspect]
     Indication: SIMPLE PARTIAL SEIZURES
     Route: 064
     Dates: start: 20090118, end: 20090701
  2. ZONEGRAN [Concomitant]
     Indication: CONVULSION
     Route: 064
     Dates: end: 20090916

REACTIONS (4)
  - LUNG DISORDER [None]
  - PREMATURE BABY [None]
  - MATERNAL EXPOSURE DURING PREGNANCY [None]
  - JAUNDICE [None]
